FAERS Safety Report 18374014 (Version 1)
Quarter: 2020Q4

REPORT INFORMATION
  Report Type: Spontaneous
  Country: US (occurrence: US)
  Receive Date: 20201012
  Receipt Date: 20201012
  Transmission Date: 20210114
  Serious: Yes (Other)
  Sender: FDA-Public Use
  Company Number: US-PURDUE-USA-2020-0169390

PATIENT
  Sex: Male

DRUGS (3)
  1. OXYCONTIN [Suspect]
     Active Substance: OXYCODONE HYDROCHLORIDE
     Indication: PRODUCT USED FOR UNKNOWN INDICATION
     Dosage: 80 MG, TID
     Route: 048
  2. OXYCONTIN [Suspect]
     Active Substance: OXYCODONE HYDROCHLORIDE
     Dosage: 80 MG, Q6- 8H
     Route: 048
  3. HYDROMORPHONE TABLETS [Suspect]
     Active Substance: HYDROMORPHONE
     Indication: PRODUCT USED FOR UNKNOWN INDICATION
     Route: 048

REACTIONS (22)
  - Dry mouth [Unknown]
  - Diarrhoea [Unknown]
  - Drug dependence [Unknown]
  - Antisocial behaviour [Unknown]
  - Palpitations [Unknown]
  - Vomiting [Unknown]
  - Unevaluable event [Unknown]
  - Loss of consciousness [Unknown]
  - Dizziness [Unknown]
  - Nausea [Unknown]
  - Headache [Unknown]
  - Hyperhidrosis [Unknown]
  - Seizure [Unknown]
  - Mental disorder [Unknown]
  - Decreased interest [Unknown]
  - Sleep disorder [Unknown]
  - Hallucination, visual [Unknown]
  - Joint swelling [Unknown]
  - Adverse drug reaction [Unknown]
  - Sleep apnoea syndrome [Unknown]
  - Constipation [Unknown]
  - Major depression [Unknown]

NARRATIVE: CASE EVENT DATE: 20050904
